FAERS Safety Report 9657208 (Version 1)
Quarter: 2013Q4

REPORT INFORMATION
  Report Type: Spontaneous
  Country: GB (occurrence: GB)
  Receive Date: 20131030
  Receipt Date: 20131030
  Transmission Date: 20140711
  Serious: Yes (Other)
  Sender: FDA-Public Use
  Company Number: GB-DRREDDYS-GER/UKI/13/0035120

PATIENT
  Age: 71 Year
  Sex: Male
  Weight: 66.7 kg

DRUGS (2)
  1. MEMANTINE [Suspect]
     Indication: PRODUCT USED FOR UNKNOWN INDICATION
     Route: 048
     Dates: start: 20130706, end: 20130709
  2. SINEMET [Concomitant]
     Indication: PARKINSON^S DISEASE
     Route: 048

REACTIONS (9)
  - Anxiety [Recovering/Resolving]
  - Chest pain [Recovering/Resolving]
  - Confusional state [Recovering/Resolving]
  - Rash [Recovering/Resolving]
  - Erythema [Recovering/Resolving]
  - Skin exfoliation [Recovering/Resolving]
  - Sleep disorder [Recovering/Resolving]
  - Musculoskeletal stiffness [Recovering/Resolving]
  - Suicidal ideation [Recovering/Resolving]
